FAERS Safety Report 5080109-2 (Version None)
Quarter: 2006Q3

REPORT INFORMATION
  Report Type: 
  Country: None (occurrence: None)
  Receive Date: 20060815
  Receipt Date: 20060803
  Transmission Date: 20061208
  Serious: Yes (Hospitalization)
  Sender: FDA-Public Use
  Company Number: US-JNJFOC-20060801260

PATIENT
  Age: 51 Year
  Sex: Female
  Weight: 65.77 kg

DRUGS (7)
  1. HALOPERIDOL DECANOATE [Suspect]
     Indication: DRUG USE FOR UNKNOWN INDICATION
     Route: 042
  2. FLAGYL [Concomitant]
  3. LASIX [Concomitant]
  4. HEPARIN [Concomitant]
  5. PROTONIX [Concomitant]
  6. LOPRESSOR [Concomitant]
  7. ZYPREXA [Concomitant]

REACTIONS (2)
  - AGITATION [None]
  - DRUG ADMINISTRATION ERROR [None]
